FAERS Safety Report 24434913 (Version 1)
Quarter: 2024Q4

REPORT INFORMATION
  Report Type: Spontaneous
  Country: US (occurrence: US)
  Receive Date: 20241014
  Receipt Date: 20241014
  Transmission Date: 20250115
  Serious: No
  Sender: SUNOVION
  Company Number: US-SUMITOMO PHARMA SWITZERLAND GMBH-2024SPA003889

PATIENT

DRUGS (4)
  1. GEMTESA [Suspect]
     Active Substance: VIBEGRON
     Indication: Urinary incontinence
     Dosage: 75 MG, QD (IN THE EVENING)
     Route: 048
     Dates: start: 20240828
  2. GEMTESA [Suspect]
     Active Substance: VIBEGRON
     Indication: Bladder discomfort
  3. GEMTESA [Suspect]
     Active Substance: VIBEGRON
     Indication: Groin pain
  4. GEMTESA [Suspect]
     Active Substance: VIBEGRON
     Indication: Micturition urgency

REACTIONS (5)
  - Chest pain [Unknown]
  - Hypoaesthesia [Unknown]
  - Paraesthesia [Unknown]
  - Chest discomfort [Unknown]
  - Product dose omission issue [Unknown]

NARRATIVE: CASE EVENT DATE: 20240917
